FAERS Safety Report 18297905 (Version 1)
Quarter: 2020Q3

REPORT INFORMATION
  Report Type: Spontaneous
  Country: US (occurrence: US)
  Receive Date: 20200922
  Receipt Date: 20200922
  Transmission Date: 20201103
  Serious: No
  Sender: FDA-Public Use
  Company Number: US-PFIZER INC-2020365578

PATIENT
  Age: 79 Year
  Sex: Female
  Weight: 51.71 kg

DRUGS (1)
  1. IBRANCE [Suspect]
     Active Substance: PALBOCICLIB
     Indication: BREAST CANCER METASTATIC
     Dosage: 75 MG, CYCLIC (ONCE DAILY FOR 3 WEEKS AND THEN OFF FOR A WEEK)

REACTIONS (1)
  - Neoplasm progression [Unknown]
